FAERS Safety Report 9934128 (Version 2)
Quarter: 2014Q2

REPORT INFORMATION
  Report Type: Spontaneous
  Country: US (occurrence: US)
  Receive Date: 20140228
  Receipt Date: 20140417
  Transmission Date: 20141212
  Serious: Yes (Other)
  Sender: FDA-Public Use
  Company Number: US-UCBSA-113132

PATIENT
  Age: 56 Year
  Sex: Female
  Weight: 59 kg

DRUGS (11)
  1. CIMZIA [Suspect]
     Indication: RHEUMATOID ARTHRITIS
     Dates: start: 2013
  2. LYRICA [Concomitant]
     Indication: NEUROPATHY PERIPHERAL
  3. SINGULAIR [Concomitant]
     Indication: HYPERSENSITIVITY
  4. SYNTHROID [Concomitant]
     Indication: HYPOTHYROIDISM
  5. CYCLOBENZAPRINE [Concomitant]
     Indication: TREMOR
  6. NORVAS [Concomitant]
     Indication: HYPERTENSION
  7. IRON [Concomitant]
     Indication: MINERAL SUPPLEMENTATION
  8. B12 [Concomitant]
     Indication: VITAMIN SUPPLEMENTATION
  9. MULTIVITAMINS [Concomitant]
  10. ZINC [Concomitant]
  11. TUMS [Concomitant]

REACTIONS (3)
  - Upper limb fracture [Not Recovered/Not Resolved]
  - Rheumatoid arthritis [Not Recovered/Not Resolved]
  - Fall [Unknown]
